FAERS Safety Report 9840450 (Version 1)
Quarter: 2013Q4

REPORT INFORMATION
  Report Type: Spontaneous
  Country: US (occurrence: None)
  Receive Date: 20131211
  Receipt Date: 20131211
  Transmission Date: 20140711
  Serious: Yes (Hospitalization)
  Sender: FDA-Public Use
  Company Number: TKT01200700065

PATIENT
  Age: 15 Year
  Sex: Male

DRUGS (1)
  1. IDURSULFASE [Suspect]
     Indication: MUCOPOLYSACCHARIDOSIS II
     Dosage: , 1 IN 2 WK,
     Route: 041
     Dates: start: 20011004

REACTIONS (3)
  - Dyspnoea [None]
  - Pyrexia [None]
  - Pulmonary congestion [None]
